FAERS Safety Report 14794946 (Version 1)
Quarter: 2018Q2

REPORT INFORMATION
  Report Type: Spontaneous
  Country: US (occurrence: US)
  Receive Date: 20180423
  Receipt Date: 20180423
  Transmission Date: 20180711
  Serious: Yes (Other)
  Sender: FDA-Public Use
  Company Number: US-PFIZER INC-2018159678

PATIENT
  Age: 63 Year
  Sex: Male

DRUGS (2)
  1. GLUCOSE [Suspect]
     Active Substance: DEXTROSE
     Dosage: GLUCOSE/SODIUM ACETATE INFUSION 150 MMOL/L AT 150 ML/MIN
     Route: 041
  2. SODIUM ACETATE. [Concomitant]
     Active Substance: SODIUM ACETATE
     Dosage: GLUCOSE/SODIUM ACETATE INFUSION 150 MMOL/L AT 150 ML/MIN
     Route: 041

REACTIONS (3)
  - Lactic acidosis [Unknown]
  - Ketoacidosis [Unknown]
  - Hypoglycaemia [Unknown]
